FAERS Safety Report 9404873 (Version 2)
Quarter: 2013Q3

REPORT INFORMATION
  Report Type: Report from Study
  Country: DE (occurrence: DE)
  Receive Date: 20130717
  Receipt Date: 20130927
  Transmission Date: 20140515
  Serious: Yes (Hospitalization)
  Sender: FDA-Public Use
  Company Number: DE-AMGEN-DEUCT2013044647

PATIENT
  Age: 64 Year
  Sex: Male

DRUGS (18)
  1. ETANERCEPT [Suspect]
     Indication: RHEUMATOID ARTHRITIS
     Dosage: 50 MG, QWK
     Route: 065
     Dates: start: 20120926
  2. ETANERCEPT [Suspect]
     Indication: PSORIATIC ARTHROPATHY
  3. PLAVIX [Concomitant]
     Dosage: UNK
  4. TORASEMIDE [Concomitant]
     Dosage: UNK
  5. HYDROCORTISONE [Concomitant]
     Dosage: UNK
  6. PREDNISOLON                        /00016201/ [Concomitant]
     Dosage: UNK
  7. METOPROLOL [Concomitant]
     Dosage: UNK
  8. ENALAPRIL [Concomitant]
     Dosage: UNK
  9. ALLOPURINOL [Concomitant]
     Dosage: UNK
  10. SIMVASTATIN [Concomitant]
     Dosage: UNK
  11. NALOXONE W/TILIDINE [Concomitant]
     Dosage: UNK
  12. BIOCAL D CR [Concomitant]
     Dosage: UNK
  13. BUDESONIDE [Concomitant]
     Dosage: UNK
  14. VIANI [Concomitant]
     Dosage: UNK
  15. INSPRA                             /01613601/ [Concomitant]
     Dosage: 1
  16. BEROTEC [Concomitant]
     Dosage: UNK
  17. COMTUSI [Concomitant]
     Dosage: UNK
  18. ALT-INSULIN [Concomitant]
     Dosage: UNK

REACTIONS (2)
  - Altered state of consciousness [Recovered/Resolved]
  - Sepsis [Recovered/Resolved]
